FAERS Safety Report 5554835-2 (Version None)
Quarter: 2007Q4

REPORT INFORMATION
  Report Type: 
  Country: None (occurrence: None)
  Receive Date: 20071213
  Receipt Date: 20071210
  Transmission Date: 20080405
  Serious: Yes (Other)
  Sender: FDA-Public Use
  Company Number: US-MERCK-0708USA02040

PATIENT
  Age: 58 Year
  Sex: Female

DRUGS (5)
  1. FOSAMAX [Suspect]
     Indication: OSTEOPOROSIS
     Route: 048
     Dates: start: 19980301, end: 20020101
  2. FOSAMAX [Suspect]
     Route: 048
     Dates: start: 20020101, end: 20041216
  3. CORTICOSTEROIDS (UNSPECIFIED) [Concomitant]
     Route: 065
     Dates: start: 19800101, end: 20070101
  4. HORMONES (UNSPECIFIED) [Concomitant]
     Route: 065
     Dates: start: 19700101, end: 20000101
  5. [THERAPY UNSPECIFIED] [Concomitant]
     Indication: RHEUMATOID ARTHRITIS
     Route: 065
     Dates: start: 19860101, end: 20070101

REACTIONS (54)
  - ACUTE SINUSITIS [None]
  - ANXIETY [None]
  - BACK DISORDER [None]
  - BACK PAIN [None]
  - BASAL CELL CARCINOMA [None]
  - BONE DISORDER [None]
  - BONE MARROW OEDEMA [None]
  - BURNING SENSATION [None]
  - BURSITIS [None]
  - CHEILITIS [None]
  - DEMYELINATION [None]
  - DENTAL CARIES [None]
  - DEPRESSION [None]
  - DIARRHOEA [None]
  - EAR DISCOMFORT [None]
  - ENDODONTIC PROCEDURE [None]
  - EXOSTOSIS [None]
  - FACIAL PAIN [None]
  - FALL [None]
  - FIBULA FRACTURE [None]
  - FRACTURE [None]
  - GINGIVAL BLEEDING [None]
  - HYPOAESTHESIA [None]
  - HYPOAESTHESIA FACIAL [None]
  - IMPAIRED HEALING [None]
  - INFECTION [None]
  - INFLAMMATION [None]
  - INJURY [None]
  - JAW DISORDER [None]
  - JOINT RANGE OF MOTION DECREASED [None]
  - MYOFASCIAL PAIN SYNDROME [None]
  - NEOPLASM MALIGNANT [None]
  - NEUROPATHY PERIPHERAL [None]
  - OSTEOMYELITIS [None]
  - OSTEONECROSIS [None]
  - PAIN [None]
  - PAIN IN JAW [None]
  - PARAESTHESIA [None]
  - PATHOLOGICAL FRACTURE [None]
  - PERIODONTAL DISEASE [None]
  - SALIVARY GLAND ENLARGEMENT [None]
  - SENSATION OF HEAVINESS [None]
  - SIALOADENITIS [None]
  - SINUSITIS [None]
  - SPINAL DISORDER [None]
  - STRESS FRACTURE [None]
  - SWELLING FACE [None]
  - TEMPOROMANDIBULAR JOINT SYNDROME [None]
  - TENDERNESS [None]
  - TIBIA FRACTURE [None]
  - TOOTH ABSCESS [None]
  - TOOTH EXTRACTION [None]
  - TRISMUS [None]
  - VULVOVAGINAL DRYNESS [None]
